FAERS Safety Report 6127050-1 (Version None)
Quarter: 2009Q1

REPORT INFORMATION
  Report Type: 
  Country: None (occurrence: None)
  Receive Date: 20090320
  Receipt Date: 20090316
  Transmission Date: 20090719
  Serious: Yes (Hospitalization, Other)
  Sender: FDA-Public Use
  Company Number: IL-ROXANE LABORATORIES, INC.-2009-RO-00238RO

PATIENT
  Age: 54 Year
  Sex: Male

DRUGS (5)
  1. DEXAMETHASONE [Suspect]
     Indication: CLUSTER HEADACHE
     Dosage: 16MG
     Route: 048
  2. PREDNISONE [Suspect]
  3. 5-AMINOSALYCILATES [Suspect]
     Indication: COLITIS ULCERATIVE
  4. IVERMECTIN [Concomitant]
     Indication: STRONGYLOIDIASIS
     Dosage: 12MG
  5. OFLOXACIN [Concomitant]

REACTIONS (3)
  - COLITIS [None]
  - ESCHERICHIA INFECTION [None]
  - STRONGYLOIDIASIS [None]
